FAERS Safety Report 7171003-1 (Version None)
Quarter: 2010Q4

REPORT INFORMATION
  Report Type: 
  Country: None (occurrence: None)
  Receive Date: 20101123
  Receipt Date: 20100816
  Transmission Date: 20110411
  Serious: No
  Sender: FDA-Public Use
  Company Number: 017385

PATIENT
  Sex: Male
  Weight: 57 kg

DRUGS (9)
  1. CIMZIA [Suspect]
     Indication: CROHN'S DISEASE
     Dosage: (400 MG 1X/2 WEEKS SUBCUTANEOUS)
     Route: 058
     Dates: start: 20100619, end: 20100731
  2. PREDNISONE [Concomitant]
  3. MESALAMINE [Concomitant]
  4. CULTURELLE [Concomitant]
  5. PROZAC /00724401/ [Concomitant]
  6. CALCIUM [Concomitant]
  7. ACTIGALL [Concomitant]
  8. FOLIC ACID [Concomitant]
  9. MELATONIN [Concomitant]

REACTIONS (3)
  - INJECTION SITE REACTION [None]
  - PRURITUS GENERALISED [None]
  - URTICARIA [None]
